FAERS Safety Report 5648570-X (Version None)
Quarter: 2008Q1

REPORT INFORMATION
  Report Type: 
  Country: None (occurrence: None)
  Receive Date: 20080304
  Receipt Date: 20080304
  Transmission Date: 20080703
  Serious: Yes (Other)
  Sender: FDA-Public Use
  Company Number: A0713183A

PATIENT
  Age: 25 Year
  Sex: Female
  Weight: 61.8 kg

DRUGS (2)
  1. ALLI [Suspect]
     Indication: WEIGHT LOSS DIET
     Route: 048
     Dates: start: 20080223, end: 20080302
  2. YAZ [Concomitant]

REACTIONS (6)
  - ABDOMINAL PAIN [None]
  - ANAL HAEMORRHAGE [None]
  - DIARRHOEA [None]
  - DYSMENORRHOEA [None]
  - HAEMATOCHEZIA [None]
  - STEATORRHOEA [None]
